FAERS Safety Report 8841205 (Version 1)
Quarter: 2012Q4

REPORT INFORMATION
  Report Type: 
  Country: FR (occurrence: FR)
  Receive Date: 20121015
  Receipt Date: 20121015
  Transmission Date: 20130627
  Serious: Yes (Hospitalization)
  Sender: FDA-Public Use
  Company Number: FR-BRISTOL-MYERS SQUIBB COMPANY-17022583

PATIENT
  Age: 79 Year
  Sex: Male

DRUGS (1)
  1. COUMADIN TABS [Suspect]
     Route: 048
     Dates: end: 20120324

REACTIONS (3)
  - Cerebral haematoma [Recovered/Resolved]
  - Fall [Recovered/Resolved]
  - Hemianopia [None]
